FAERS Safety Report 9378688 (Version 1)
Quarter: 2013Q4

REPORT INFORMATION
  Report Type: Spontaneous
  Country: FR (occurrence: None)
  Receive Date: 20130626
  Receipt Date: 20130626
  Transmission Date: 20140711
  Serious: Yes (Hospitalization)
  Sender: FDA-Public Use
  Company Number: FR-CLINIGEN HEALTHCARE LMITED-003059

PATIENT
  Age: 52 Year
  Sex: Female

DRUGS (9)
  1. FOSCAVIR (FOSCAVIR) [Suspect]
     Indication: CYTOMEGALOVIRUS INFECTION
     Dosage: (NOT OTHERWISE SPECIFIED)
     Route: 042
     Dates: start: 20111220, end: 20120116
  2. FOSCAVIR (FOSCAVIR) [Suspect]
     Indication: CYTOMEGALOVIRUS INFECTION
     Dates: start: 20120202
  3. CELLCEPT [Concomitant]
  4. CORTANCYL [Concomitant]
  5. ZELITREX [Concomitant]
  6. MARIBAVIR [Concomitant]
  7. TR FLUCAN [Concomitant]
  8. NEORAL [Concomitant]
  9. BACTRIM [Concomitant]

REACTIONS (6)
  - Vomiting [None]
  - Mucosal ulceration [None]
  - Urethral haemorrhage [None]
  - Drug tolerance decreased [None]
  - Bronchopulmonary aspergillosis [None]
  - Hypercapnic coma [None]
